FAERS Safety Report 25456200 (Version 2)
Quarter: 2025Q3

REPORT INFORMATION
  Report Type: Spontaneous
  Country: US (occurrence: US)
  Receive Date: 20250619
  Receipt Date: 20250812
  Transmission Date: 20251021
  Serious: Yes (Other)
  Sender: SANOFI AVENTIS
  Company Number: US-SA-2025SA171468

PATIENT
  Age: 72 Year
  Sex: Male
  Weight: 68.073 kg

DRUGS (1)
  1. DUPIXENT [Suspect]
     Active Substance: DUPILUMAB
     Indication: Dermatitis atopic
     Dosage: 300 MG, QOW
     Route: 058
     Dates: start: 202503

REACTIONS (10)
  - Omphalitis [Not Recovered/Not Resolved]
  - Weight decreased [Unknown]
  - Eating disorder [Unknown]
  - Gait disturbance [Unknown]
  - Skin ulcer [Unknown]
  - Skin haemorrhage [Unknown]
  - Localised infection [Not Recovered/Not Resolved]
  - Feeling abnormal [Unknown]
  - Pruritus [Unknown]
  - Injection site pain [Unknown]

NARRATIVE: CASE EVENT DATE: 20250101
